FAERS Safety Report 24097419 (Version 1)
Quarter: 2024Q3

REPORT INFORMATION
  Report Type: Report from Study
  Country: US (occurrence: US)
  Receive Date: 20240716
  Receipt Date: 20240716
  Transmission Date: 20241017
  Serious: Yes (Other)
  Sender: NOVARTIS
  Company Number: US-002147023-NVSC2024US144625

PATIENT
  Age: 57 Year
  Sex: Female

DRUGS (1)
  1. GLEEVEC [Suspect]
     Active Substance: IMATINIB MESYLATE
     Indication: Chronic myeloid leukaemia
     Dosage: UNK
     Route: 065

REACTIONS (14)
  - Nausea [Unknown]
  - Vomiting [Unknown]
  - Constipation [Unknown]
  - Diarrhoea [Unknown]
  - Dyspnoea [Unknown]
  - Cough [Unknown]
  - Disturbance in attention [Unknown]
  - Memory impairment [Unknown]
  - Headache [Unknown]
  - Myalgia [Unknown]
  - Arthralgia [Unknown]
  - Fatigue [Unknown]
  - Anxiety [Unknown]
  - Libido decreased [Unknown]
